FAERS Safety Report 24021836 (Version 1)
Quarter: 2024Q2

REPORT INFORMATION
  Report Type: Spontaneous
  Country: FR (occurrence: FR)
  Receive Date: 20240627
  Receipt Date: 20240627
  Transmission Date: 20240716
  Serious: No
  Sender: FDA-Public Use
  Company Number: FR-ROCHE-3548106

PATIENT
  Age: 55 Year
  Sex: Male

DRUGS (2)
  1. VABYSMO [Suspect]
     Active Substance: FARICIMAB\FARICIMAB-SVOA
     Indication: Telangiectasia
     Route: 050
     Dates: start: 20240227
  2. VABYSMO [Suspect]
     Active Substance: FARICIMAB\FARICIMAB-SVOA
     Indication: Venous occlusion

REACTIONS (3)
  - Oedema [Unknown]
  - Visual impairment [Unknown]
  - Off label use [Unknown]
